FAERS Safety Report 24703625 (Version 1)
Quarter: 2024Q4

REPORT INFORMATION
  Report Type: Spontaneous
  Country: FR (occurrence: FR)
  Receive Date: 20241206
  Receipt Date: 20241206
  Transmission Date: 20250115
  Serious: Yes (Hospitalization, Other)
  Sender: ALKEM
  Company Number: None

PATIENT
  Age: 6 Decade
  Sex: Female
  Weight: 64 kg

DRUGS (7)
  1. MYCOPHENOLATE MOFETIL [Suspect]
     Active Substance: MYCOPHENOLATE MOFETIL
     Indication: Immunosuppressant drug therapy
     Dosage: UNK
     Route: 065
  2. MYCOPHENOLATE MOFETIL [Suspect]
     Active Substance: MYCOPHENOLATE MOFETIL
     Dosage: UNK (REDUCTION OF THE MYCOPHENOLATE MOFETIL DOSAGE BY A FACTOR OF 4)
     Route: 065
  3. MYCOPHENOLATE MOFETIL [Suspect]
     Active Substance: MYCOPHENOLATE MOFETIL
     Dosage: 2000 MILLIGRAM, QD
     Route: 048
  4. TACROLIMUS [Suspect]
     Active Substance: TACROLIMUS
     Indication: Immunosuppressant drug therapy
     Dosage: 10 MILLIGRAM
     Route: 048
  5. THYMOCYTE IMMUNE GLOBULIN NOS [Suspect]
     Active Substance: THYMOCYTE IMMUNE GLOBULIN NOS
     Indication: Immunosuppressant drug therapy
     Dosage: 87.5 MILLIGRAM, QD
     Route: 042
  6. THYMOCYTE IMMUNE GLOBULIN NOS [Suspect]
     Active Substance: THYMOCYTE IMMUNE GLOBULIN NOS
     Dosage: 50 MILLIGRAM
     Route: 042
  7. THYMOCYTE IMMUNE GLOBULIN NOS [Suspect]
     Active Substance: THYMOCYTE IMMUNE GLOBULIN NOS
     Dosage: 75 MILLIGRAM, QD
     Route: 042

REACTIONS (6)
  - Chronic hepatitis [Recovered/Resolved]
  - Hepatitis E [Recovered/Resolved]
  - Lymphopenia [Unknown]
  - Pyelonephritis acute [Unknown]
  - Cytomegalovirus infection [Recovered/Resolved]
  - Nosocomial infection [Unknown]

NARRATIVE: CASE EVENT DATE: 20210101
